FAERS Safety Report 8032563-1 (Version None)
Quarter: 2012Q1

REPORT INFORMATION
  Report Type: 
  Country: None (occurrence: None)
  Receive Date: 20120105
  Receipt Date: 20111225
  Transmission Date: 20120608
  Serious: Yes (Other)
  Sender: FDA-Public Use
  Company Number: VISP-NO-1201S-0001

PATIENT

DRUGS (1)
  1. VISIPAQUE [Suspect]
     Indication: PRODUCT USED FOR UNKNOWN INDICATION
     Dosage: SINGLE DOSE
     Dates: start: 20110101, end: 20110101

REACTIONS (2)
  - CEREBROVASCULAR ACCIDENT [None]
  - INJECTION RELATED REACTION [None]
